FAERS Safety Report 7480399-2 (Version None)
Quarter: 2011Q2

REPORT INFORMATION
  Report Type: 
  Country: None (occurrence: None)
  Receive Date: 20110516
  Receipt Date: 20110502
  Transmission Date: 20111010
  Serious: Yes (Hospitalization, Other)
  Sender: FDA-Public Use
  Company Number: PHHY2011FR37956

PATIENT
  Sex: Female

DRUGS (8)
  1. HYPERIUM [Concomitant]
  2. VOLTAREN [Suspect]
     Route: 061
  3. VOLTAREN [Suspect]
     Indication: ARTHRALGIA
     Dosage: UNK
     Route: 048
  4. ZOLPIDEM [Concomitant]
  5. STEROGYL [Concomitant]
     Dosage: UNK
  6. TIMOLOL MALEATE [Concomitant]
     Dosage: UNK
  7. AMLODIPINE BESYLATE [Concomitant]
     Dosage: UNK
  8. CANDESARTAN CILEXETIL/HYDROCHROTHIAZIDE [Concomitant]
     Dosage: UNK

REACTIONS (8)
  - HAEMORRHAGIC ANAEMIA [None]
  - MELAENA [None]
  - ADENOCARCINOMA [None]
  - ASTHENIA [None]
  - ABDOMINAL PAIN UPPER [None]
  - GAIT DISTURBANCE [None]
  - HAEMOGLOBIN DECREASED [None]
  - HAEMORRHAGE [None]
